FAERS Safety Report 8032982-3 (Version None)
Quarter: 2012Q1

REPORT INFORMATION
  Report Type: 
  Country: None (occurrence: None)
  Receive Date: 20120110
  Receipt Date: 20111230
  Transmission Date: 20120608
  Serious: Yes (Hospitalization)
  Sender: FDA-Public Use
  Company Number: US-ELI_LILLY_AND_COMPANY-US201108000995

PATIENT
  Sex: Male

DRUGS (17)
  1. ISOSORBIDE DINITRATE [Concomitant]
  2. VITAMIN C [Concomitant]
     Dosage: 500 MG, UNKNOWN
  3. VITAMIN D [Concomitant]
     Dosage: 500 IU, UNKNOWN
  4. PRAVASTATIN [Concomitant]
  5. PLAVIX [Concomitant]
  6. CALTRATE +D [Concomitant]
  7. FLOMAX [Concomitant]
  8. LASIX [Concomitant]
     Dosage: 20 MG, QD
  9. FORTEO [Suspect]
     Dosage: 20 UG, QD
  10. FOLIC ACID [Concomitant]
     Dosage: 1 MG, UNKNOWN
  11. ASPIRIN [Concomitant]
     Dosage: 81 MG, UNKNOWN
  12. FORTEO [Suspect]
     Indication: OSTEOPOROSIS
     Dosage: 20 UG, QD
     Dates: start: 20110720
  13. VITAMIN B-12 [Concomitant]
  14. ANDROGEL [Concomitant]
  15. SOMA [Concomitant]
     Indication: MUSCLE DISORDER
     Dosage: UNK, QD
  16. FORTEO [Suspect]
     Dosage: 20 UG, QD
  17. FERROUS SULFATE TAB [Concomitant]

REACTIONS (8)
  - PAIN [None]
  - POST PROCEDURAL COMPLICATION [None]
  - PROCEDURAL PAIN [None]
  - FALL [None]
  - SENSORY LOSS [None]
  - ARTHRITIS [None]
  - NERVE COMPRESSION [None]
  - ARTHRALGIA [None]
